FAERS Safety Report 5951674-5 (Version None)
Quarter: 2008Q4

REPORT INFORMATION
  Report Type: 
  Country: None (occurrence: None)
  Receive Date: 20081113
  Receipt Date: 20081106
  Transmission Date: 20090506
  Serious: Yes (Hospitalization)
  Sender: FDA-Public Use
  Company Number: US-BRISTOL-MYERS SQUIBB COMPANY-14397517

PATIENT
  Age: 80 Year
  Sex: Male
  Weight: 73 kg

DRUGS (4)
  1. ERBITUX [Suspect]
     Indication: OESOPHAGEAL CARCINOMA
     Dosage: STARTED ON 22SEP08
     Dates: start: 20081028, end: 20081028
  2. CISPLATIN [Suspect]
     Indication: OESOPHAGEAL CARCINOMA
     Dosage: STARTED ON 22SEP08
     Dates: start: 20081028, end: 20081028
  3. TAXOL [Suspect]
     Indication: OESOPHAGEAL CARCINOMA
     Dosage: STARTED ON 22SEP08
     Dates: start: 20081028, end: 20081028
  4. RADIATION THERAPY [Suspect]
     Indication: OESOPHAGEAL CARCINOMA
     Dosage: 1 DOSAGE FORM=50.4 GY. NO OF FRACTIONS:28.
     Dates: start: 20081030, end: 20081030

REACTIONS (3)
  - DEHYDRATION [None]
  - GASTRITIS [None]
  - OESOPHAGITIS [None]
